FAERS Safety Report 4297356-X (Version None)
Quarter: 2004Q1

REPORT INFORMATION
  Report Type: 
  Country: None (occurrence: None)
  Receive Date: 20040126
  Receipt Date: 20030915
  Transmission Date: 20041129
  Serious: No
  Sender: FDA-Public Use
  Company Number: USA030947182

PATIENT
  Sex: Male

DRUGS (5)
  1. STRATTERA [Suspect]
     Indication: ATTENTION DEFICIT/HYPERACTIVITY DISORDER
     Dosage: 80 MG
     Dates: start: 20030801
  2. LEVOTHROID [Concomitant]
  3. LIPITOR [Concomitant]
  4. PROTONIX [Concomitant]
  5. RITALIN [Concomitant]

REACTIONS (3)
  - PHARYNGOLARYNGEAL PAIN [None]
  - PROSTATIC PAIN [None]
  - URINARY HESITATION [None]
